FAERS Safety Report 4994707-5 (Version None)
Quarter: 2006Q1

REPORT INFORMATION
  Report Type: 
  Country: None (occurrence: None)
  Receive Date: 20060313
  Receipt Date: 20050822
  Transmission Date: 20060701
  Serious: Yes (Hospitalization)
  Sender: FDA-Public Use
  Company Number: PHEH2005US04630

PATIENT
  Age: 45 Year
  Sex: Male

DRUGS (4)
  1. TRILEPTAL [Suspect]
     Indication: TRIGEMINAL NEURALGIA
     Dosage: 900 MG,QD,ORAL
     Route: 048
     Dates: start: 20040210, end: 20050412
  2. LORTAB [Concomitant]
  3. SYNTHROID [Concomitant]
  4. KLONOPIN [Concomitant]

REACTIONS (8)
  - ASTHENIA [None]
  - CHEST DISCOMFORT [None]
  - DIZZINESS [None]
  - DYSPNOEA [None]
  - HYPONATRAEMIA [None]
  - PALPITATIONS [None]
  - SYNCOPE [None]
  - TREMOR [None]
